FAERS Safety Report 8277900-8 (Version None)
Quarter: 2012Q2

REPORT INFORMATION
  Report Type: 
  Country: None (occurrence: None)
  Receive Date: 20120412
  Receipt Date: 20120402
  Transmission Date: 20120825
  Serious: Yes (Hospitalization, Other)
  Sender: FDA-Public Use
  Company Number: US-ELI_LILLY_AND_COMPANY-US201110006796

PATIENT
  Sex: Female
  Weight: 84.807 kg

DRUGS (16)
  1. LEVOTHYROXINE SODIUM [Concomitant]
  2. CALCIUM W/VITAMIN D NOS [Concomitant]
  3. FORTEO [Suspect]
     Dosage: 20 UG, QD
     Dates: start: 20120301
  4. FORTEO [Suspect]
     Indication: OSTEOPOROSIS
     Dosage: 20 UG, QD
     Route: 065
     Dates: start: 20110901
  5. ZOLPIDEM [Concomitant]
  6. XANAX [Concomitant]
  7. DAYPRO [Concomitant]
  8. FORTEO [Suspect]
     Dosage: 20 UG, QD
     Route: 065
     Dates: start: 20110901, end: 20120108
  9. M.V.I. [Concomitant]
  10. NORTRIPTYLINE HCL [Concomitant]
  11. FUROSEMIDE [Concomitant]
  12. VICODIN [Concomitant]
  13. PRAVASTATIN [Concomitant]
  14. CITALOPRAM HYDROBROMIDE [Concomitant]
  15. FISH OIL [Concomitant]
  16. POTASSIUM [Concomitant]

REACTIONS (4)
  - PAIN [None]
  - ARTHRALGIA [None]
  - BACK PAIN [None]
  - SLEEP DISORDER DUE TO A GENERAL MEDICAL CONDITION [None]
